FAERS Safety Report 23169275 (Version 2)
Quarter: 2024Q2

REPORT INFORMATION
  Report Type: Spontaneous
  Country: DE (occurrence: DE)
  Receive Date: 20231110
  Receipt Date: 20240521
  Transmission Date: 20240715
  Serious: Yes (Other)
  Sender: FDA-Public Use
  Company Number: DE-002147023- NVSC2023DE150884

PATIENT
  Sex: Male
  Weight: 86 kg

DRUGS (13)
  1. ELIQUIS [Suspect]
     Active Substance: APIXABAN
     Indication: Thrombosis
     Dosage: 5 MG, BID (1-0-1)
     Route: 065
     Dates: end: 2023
  2. HYDROMORPHONE [Suspect]
     Active Substance: HYDROMORPHONE
     Indication: Back pain
     Dosage: UNK, BID (1-0-1, REDUCTION TO 4 MG 1-0-1 RECOMMENDED)
     Route: 065
  3. POLYETHYLENE GLYCOLS [Suspect]
     Active Substance: POLYETHYLENE GLYCOLS
     Indication: Product used for unknown indication
     Dosage: 1 DOSAGE FORM (1 SACHET EVERY 2 DAYS)
     Route: 065
  4. OFIRMEV [Suspect]
     Active Substance: ACETAMINOPHEN
     Indication: Product used for unknown indication
     Dosage: UNK, PRN
     Route: 065
  5. ACETAMINOPHEN [Suspect]
     Active Substance: ACETAMINOPHEN
     Indication: Product used for unknown indication
     Dosage: UNK, PRN
     Route: 065
  6. TABRECTA [Suspect]
     Active Substance: CAPMATINIB
     Indication: Non-small cell lung cancer
     Dosage: 150 MG  (2-0-2)
     Route: 065
     Dates: start: 202206
  7. TORSEMIDE [Suspect]
     Active Substance: TORSEMIDE
     Dosage: UNK, BID (1-0-1)
     Route: 065
  8. TORSEMIDE [Suspect]
     Active Substance: TORSEMIDE
     Indication: Product used for unknown indication
     Dosage: UNK, QD (1-0-0)
     Route: 065
  9. CALCIUM [Concomitant]
     Active Substance: CALCIUM
     Indication: Product used for unknown indication
     Dosage: UNK, QD (1-0-0)
     Route: 065
  10. FOLIC ACID [Concomitant]
     Active Substance: FOLIC ACID
     Indication: Product used for unknown indication
     Dosage: UNK, QD (1-0-0)
     Route: 065
  11. VENORUTON INTENS [Concomitant]
     Indication: Product used for unknown indication
     Dosage: UNK (IF DELIVERED, CORRESPONDING OF PREDETERMINED DOSAGE FOR AVOIDING OF CAPILLARY-PERMEABILITY)
     Route: 065
  12. VITAMIN D NOS [Concomitant]
     Active Substance: CHOLECALCIFEROL\ERGOCALCIFEROL
     Indication: Product used for unknown indication
     Dosage: UNK (LIQUID, ACCORDING TO LEVEL)
     Route: 065
  13. ZOMETA [Concomitant]
     Active Substance: ZOLEDRONIC ACID
     Indication: Product used for unknown indication
     Dosage: UNK, QMO
     Route: 065

REACTIONS (34)
  - Chylothorax [Unknown]
  - Deafness [Unknown]
  - Thrombosis [Recovered/Resolved]
  - Hypoacusis [Unknown]
  - Amylase increased [Unknown]
  - Fatigue [Not Recovered/Not Resolved]
  - Breath sounds abnormal [Unknown]
  - Conjunctivitis [Recovering/Resolving]
  - Asthma [Recovering/Resolving]
  - Blood albumin decreased [Unknown]
  - Weight increased [Recovering/Resolving]
  - Gynaecomastia [Not Recovered/Not Resolved]
  - Back pain [Recovering/Resolving]
  - Hyperaesthesia [Unknown]
  - Dizziness [Recovered/Resolved]
  - Tinnitus [Unknown]
  - Asthenia [Unknown]
  - Oedema peripheral [Not Recovered/Not Resolved]
  - Haemoglobin decreased [Unknown]
  - Pleural effusion [Recovering/Resolving]
  - Dyspnoea [Not Recovered/Not Resolved]
  - Sputum increased [Recovering/Resolving]
  - Lymphoedema [Unknown]
  - Blood urea increased [Unknown]
  - Fluid retention [Not Recovered/Not Resolved]
  - Blood creatinine increased [Unknown]
  - Blood potassium increased [Unknown]
  - Lipase increased [Unknown]
  - Blood calcium decreased [Unknown]
  - Glomerular filtration rate increased [Unknown]
  - Protein deficiency [Not Recovered/Not Resolved]
  - Red blood cell count decreased [Unknown]
  - Skin hypertrophy [Not Recovered/Not Resolved]
  - Off label use [Unknown]

NARRATIVE: CASE EVENT DATE: 20220801
